FAERS Safety Report 12130341 (Version 1)
Quarter: 2016Q1

REPORT INFORMATION
  Report Type: Report from Study
  Country: NL (occurrence: NL)
  Receive Date: 20160301
  Receipt Date: 20160301
  Transmission Date: 20160526
  Serious: Yes (Hospitalization, Other)
  Sender: FDA-Public Use
  Company Number: PHHY2016NL012545

PATIENT
  Age: 21 Year
  Sex: Female

DRUGS (1)
  1. SANDOSTATIN LAR DEPOT [Suspect]
     Active Substance: OCTREOTIDE ACETATE
     Indication: PROTEIN-LOSING GASTROENTEROPATHY
     Dosage: 20 MG PER 2 ML, QMO
     Route: 030
     Dates: start: 20141112

REACTIONS (3)
  - Diarrhoea [Recovered/Resolved]
  - Viral infection [Unknown]
  - Product use issue [Unknown]

NARRATIVE: CASE EVENT DATE: 20160126
